FAERS Safety Report 5034515-2 (Version None)
Quarter: 2006Q2

REPORT INFORMATION
  Report Type: 
  Country: None (occurrence: None)
  Receive Date: 20060623
  Receipt Date: 20060623
  Transmission Date: 20061013
  Serious: No
  Sender: FDA-Public Use
  Company Number: None

PATIENT
  Age: 57 Year
  Sex: Male
  Weight: 84.369 kg

DRUGS (1)
  1. METFORMIN [Suspect]

REACTIONS (5)
  - BLOOD GLUCOSE INCREASED [None]
  - POLLAKIURIA [None]
  - THERAPEUTIC RESPONSE UNEXPECTED WITH DRUG SUBSTITUTION [None]
  - THIRST [None]
  - WEIGHT DECREASED [None]
